FAERS Safety Report 9097027 (Version 1)
Quarter: 2013Q1

REPORT INFORMATION
  Report Type: Spontaneous
  Country: GR (occurrence: None)
  Receive Date: 20130123
  Receipt Date: 20130123
  Transmission Date: 20140127
  Serious: Yes (Hospitalization)
  Sender: FDA-Public Use
  Company Number: B0861086A

PATIENT
  Sex: 0

DRUGS (2)
  1. LAPATINIB TABLET LAPATINIB (GENERIC) [Suspect]
     Indication: GLIOMA
     Dosage: 1000 MG/ IUNK/ ORAL
     Route: 048
  2. TEMOZOLOMIDE TABLET (TEMOZOLOMIDE) [Suspect]
     Indication: GLIOMA
     Dosage: 1000 MG/ UNK/ ORAL
     Route: 048

REACTIONS (1)
  - Febrile neutropenia [None]
